FAERS Safety Report 9341441 (Version 1)
Quarter: 2013Q2

REPORT INFORMATION
  Report Type: Spontaneous
  Country: CN (occurrence: CN)
  Receive Date: 20130611
  Receipt Date: 20130611
  Transmission Date: 20140414
  Serious: Yes (Other)
  Sender: FDA-Public Use
  Company Number: CN-JNJFOC-20130602685

PATIENT
  Age: 9 Year
  Sex: Male
  Weight: 25 kg

DRUGS (13)
  1. ACETAMINOPHEN [Suspect]
     Route: 048
  2. ACETAMINOPHEN [Suspect]
     Indication: BRONCHITIS
     Route: 048
     Dates: start: 20120118, end: 20120122
  3. TYLENOL INFANT DROPS [Suspect]
     Indication: PYREXIA
     Dosage: 10ML
     Route: 048
     Dates: start: 20120118, end: 20120127
  4. TYLENOL INFANT DROPS [Suspect]
     Indication: TONSILLAR INFLAMMATION
     Dosage: 10ML
     Route: 048
     Dates: start: 20120118, end: 20120127
  5. CEFTRIAXONE SODIUM [Suspect]
     Indication: BRONCHITIS
     Route: 041
     Dates: start: 20120122, end: 20120124
  6. AMOXIL [Suspect]
     Indication: BRONCHITIS
     Route: 048
     Dates: start: 20120118, end: 20120122
  7. TRADITIONAL CHINESE MEDICATION [Suspect]
     Indication: BRONCHITIS
     Dosage: DRUG NAME REPORTED AS SANCHAKU
     Route: 048
     Dates: start: 20120118, end: 20120122
  8. TRADITIONAL CHINESE MEDICATION [Suspect]
     Indication: BRONCHITIS
     Dosage: DRUG NAME REPORTED AS JINZANYINPAN
     Route: 048
     Dates: start: 20120118, end: 20120122
  9. TRADITIONAL CHINESE MEDICATION [Suspect]
     Indication: BRONCHITIS
     Dosage: DRUG NAME REPORTED AS YEJUHUA
     Route: 048
     Dates: start: 20120118, end: 20120122
  10. TRADITIONAL CHINESE MEDICATION [Suspect]
     Indication: BRONCHITIS
     Dosage: DRUG NAME REPORTED AS GANGMEI
     Route: 048
     Dates: start: 20120118, end: 20120122
  11. CHLORPHENIRAMINE MALEATE [Suspect]
     Indication: BRONCHITIS
     Route: 048
     Dates: start: 20120118, end: 20120122
  12. CAFFEINE [Suspect]
     Indication: BRONCHITIS
     Route: 048
     Dates: start: 20120118, end: 20120122
  13. RIBAVIRIN [Suspect]
     Indication: BRONCHITIS
     Route: 041
     Dates: start: 20120118, end: 20120122

REACTIONS (2)
  - Hepatic function abnormal [Recovered/Resolved]
  - Rash [Recovered/Resolved]
